FAERS Safety Report 4717536-6 (Version None)
Quarter: 2005Q3

REPORT INFORMATION
  Report Type: 
  Country: None (occurrence: None)
  Receive Date: 20050715
  Receipt Date: 20050629
  Transmission Date: 20060218
  Serious: Yes (Disabling, Other)
  Sender: FDA-Public Use
  Company Number: 2004-0007266

PATIENT
  Age: 3 Year
  Sex: Male
  Weight: 14.5151 kg

DRUGS (1)
  1. HEPSERA [Suspect]
     Indication: HEPATITIS B
     Dosage: 30 MG, 1 IN 1 D, ORAL
     Route: 048
     Dates: start: 20030607, end: 20040404

REACTIONS (9)
  - ASTHENIA [None]
  - COELIAC DISEASE [None]
  - CONSTIPATION [None]
  - COORDINATION ABNORMAL [None]
  - DIFFICULTY IN WALKING [None]
  - MUSCLE STRAIN [None]
  - MUSCULAR WEAKNESS [None]
  - OVERDOSE [None]
  - SPINAL DISORDER [None]
